FAERS Safety Report 9375288 (Version 1)
Quarter: 2013Q2

REPORT INFORMATION
  Report Type: Spontaneous
  Country: ES (occurrence: ES)
  Receive Date: 20130628
  Receipt Date: 20130628
  Transmission Date: 20140414
  Serious: Yes (Other)
  Sender: FDA-Public Use
  Company Number: ES-ABBOTT-13P-056-1108503-00

PATIENT
  Age: 46 Year
  Sex: Female

DRUGS (2)
  1. ADALIMUMAB [Suspect]
     Indication: PSORIASIS
     Route: 058
  2. AZATHIOPRINE [Concomitant]
     Indication: COLITIS ULCERATIVE

REACTIONS (1)
  - Systemic lupus erythematosus [Recovered/Resolved]
